FAERS Safety Report 7543518-5 (Version None)
Quarter: 2011Q2

REPORT INFORMATION
  Report Type: 
  Country: None (occurrence: None)
  Receive Date: 20110613
  Receipt Date: 20011214
  Transmission Date: 20111010
  Serious: Yes (Hospitalization)
  Sender: FDA-Public Use
  Company Number: PHBS2001VE13588

PATIENT
  Age: 77 Year
  Sex: Female

DRUGS (3)
  1. DIOVAN HCT [Suspect]
     Dosage: VAL 160 MG/HCT 12.5 MG
  2. ATENOLOL [Concomitant]
  3. AMLODIPINE [Concomitant]
     Dosage: 10 MG, UNK

REACTIONS (3)
  - ANGINA PECTORIS [None]
  - LOSS OF CONSCIOUSNESS [None]
  - HYPERTENSION [None]
